FAERS Safety Report 9449678 (Version 2)
Quarter: 2013Q3

REPORT INFORMATION
  Report Type: Spontaneous
  Country: JP (occurrence: JP)
  Receive Date: 20130809
  Receipt Date: 20130923
  Transmission Date: 20140515
  Serious: Yes (Other)
  Sender: FDA-Public Use
  Company Number: JP-009507513-1307JPN009235

PATIENT
  Age: 79 Year
  Sex: Female

DRUGS (8)
  1. FOSAMAC TABLETS 35MG [Suspect]
     Indication: OSTEOPOROSIS
     Dosage: 35 MG, QW
     Route: 048
     Dates: end: 20130614
  2. PL-GRANULES [Suspect]
     Indication: NASOPHARYNGITIS
     Dosage: 3 G, QD, DIVIDED DOSE FREQUENCY UNKNOWN
     Route: 048
     Dates: start: 20130517, end: 20130523
  3. OLMETEC [Concomitant]
     Dosage: 20 MG, QD, DIVIDED DOSE FREQUENCY UNKNOWN
     Route: 048
  4. AMLODIPINE [Concomitant]
     Dosage: 5 MG, QD, DIVIDED DOSE FREQUENCY UNKNOWN
     Route: 048
  5. PONOPHEN [Concomitant]
     Indication: NASOPHARYNGITIS
     Dosage: 3 DF, QD, DIVIDED DOSE FREQUENCY UNKNOWN
     Route: 048
     Dates: start: 20130517, end: 20130523
  6. SHAKUYAKU-KANZO-TO [Concomitant]
     Indication: MUSCLE SPASMS
     Dosage: 2.5 G, SINGLE USE
     Route: 048
     Dates: start: 20130412, end: 20130510
  7. SHAKUYAKU-KANZO-TO [Concomitant]
     Dosage: 5 G, QD, DIVIDED DOSE FREQUENCY UNKNOWN
     Route: 048
     Dates: start: 20130517, end: 20130604
  8. ELCITONIN [Concomitant]
     Indication: OSTEOPOROSIS
     Dosage: UNK, QW, ONCE DOSAGE UNKNOWN
     Route: 030
     Dates: start: 20121130, end: 20130517

REACTIONS (2)
  - Gastric ulcer haemorrhage [Recovering/Resolving]
  - Anaemia [Unknown]
